FAERS Safety Report 13675160 (Version 2)
Quarter: 2017Q3

REPORT INFORMATION
  Report Type: Spontaneous
  Country: US (occurrence: US)
  Receive Date: 20170621
  Receipt Date: 20170717
  Transmission Date: 20171127
  Serious: Yes (Death, Hospitalization)
  Sender: FDA-Public Use
  Company Number: US-ACTELION-A-US2017-155481

PATIENT
  Age: 55 Year
  Sex: Female

DRUGS (8)
  1. ATENOLOL. [Concomitant]
     Active Substance: ATENOLOL
  2. DIGOXIN. [Concomitant]
     Active Substance: DIGOXIN
  3. LASIX [Concomitant]
     Active Substance: FUROSEMIDE
  4. ULORIC [Concomitant]
     Active Substance: FEBUXOSTAT
  5. POTASSIUM [Concomitant]
     Active Substance: POTASSIUM
  6. OPSUMIT [Suspect]
     Active Substance: MACITENTAN
     Indication: PULMONARY ARTERIAL HYPERTENSION
     Dosage: 10 MG, QD
     Route: 048
     Dates: start: 20150821
  7. CHLOROTHIAZIDE. [Concomitant]
     Active Substance: CHLOROTHIAZIDE
  8. WARFARIN [Concomitant]
     Active Substance: WARFARIN

REACTIONS (2)
  - Peritonitis [Recovering/Resolving]
  - Death [Fatal]

NARRATIVE: CASE EVENT DATE: 20170626
